FAERS Safety Report 7654294-X (Version None)
Quarter: 2011Q3

REPORT INFORMATION
  Report Type: 
  Country: None (occurrence: None)
  Receive Date: 20110803
  Receipt Date: 20110801
  Transmission Date: 20111222
  Serious: Yes (Other)
  Sender: FDA-Public Use
  Company Number: US-PFIZER INC-2011149747

PATIENT
  Sex: Female
  Weight: 53.515 kg

DRUGS (9)
  1. NASAL SALINE [Concomitant]
     Dosage: UNK
  2. VESICARE [Suspect]
     Indication: HYPERTONIC BLADDER
     Dosage: UNK
  3. DETROL LA [Suspect]
     Dosage: 4 MG, 2X/DAY
  4. FIORICET [Concomitant]
     Indication: PAIN
     Dosage: UNK
  5. FLUOXETINE [Concomitant]
     Dosage: UNK
  6. DETROL LA [Suspect]
     Indication: HYPERTONIC BLADDER
     Dosage: UNK
     Dates: start: 20100701
  7. OXYBUTYNIN [Suspect]
     Indication: HYPERTONIC BLADDER
     Dosage: UNK
  8. SYNTHROID [Concomitant]
     Indication: THYROID DISORDER
     Dosage: UNK
  9. PROZAC [Concomitant]
     Indication: DEPRESSION
     Dosage: UNK

REACTIONS (7)
  - CYSTITIS [None]
  - CONCUSSION [None]
  - BLADDER PAIN [None]
  - PAIN [None]
  - CORNEAL ABRASION [None]
  - HEART RATE INCREASED [None]
  - SINUSITIS [None]
